FAERS Safety Report 5959267-0 (Version None)
Quarter: 2008Q4

REPORT INFORMATION
  Report Type: 
  Country: None (occurrence: None)
  Receive Date: 20081120
  Receipt Date: 20081117
  Transmission Date: 20090506
  Serious: Yes (Life-Threatening)
  Sender: FDA-Public Use
  Company Number: IT-WYE-G02449108

PATIENT
  Sex: Female

DRUGS (5)
  1. EFFEXOR [Suspect]
     Indication: DEPRESSION
     Dosage: 37.5 MG DAILY
     Route: 048
     Dates: start: 20080930, end: 20080930
  2. LOVAZA [Concomitant]
  3. VITAMIN E [Concomitant]
  4. ADALAT [Concomitant]
     Dosage: 20 MG FROM 2 YEARS
     Route: 048
  5. RABEPRAZOLE SODIUM [Concomitant]
     Dosage: 10 MG FROM 2 YEARS
     Route: 048

REACTIONS (4)
  - BRONCHOSPASM [None]
  - DYSPNOEA [None]
  - HYPOTENSION [None]
  - STRIDOR [None]
